FAERS Safety Report 14985867 (Version 1)
Quarter: 2018Q2

REPORT INFORMATION
  Report Type: Spontaneous
  Country: US (occurrence: US)
  Receive Date: 20180516
  Receipt Date: 20180516
  Transmission Date: 20180711
  Serious: Yes (Hospitalization)
  Sender: FDA-Public Use
  Company Number: None

PATIENT
  Age: 34 Year
  Sex: Male
  Weight: 105.4 kg

DRUGS (6)
  1. ETOPOSIDE (VP-16) [Suspect]
     Active Substance: ETOPOSIDE
     Dates: end: 20180224
  2. TAXOL [Suspect]
     Active Substance: PACLITAXEL
     Dates: end: 20171229
  3. G-CSF (FILGRASTIM, AMGEN) [Suspect]
     Active Substance: FILGRASTIM
     Dates: end: 20180107
  4. NEULASTA [Suspect]
     Active Substance: PEGFILGRASTIM
     Dates: end: 20180227
  5. CARBOPLATIN. [Suspect]
     Active Substance: CARBOPLATIN
     Dates: end: 20180224
  6. IFOSFAMIDE. [Suspect]
     Active Substance: IFOSFAMIDE
     Dates: end: 20171231

REACTIONS (5)
  - Nausea [None]
  - Constipation [None]
  - Obstruction [None]
  - Flank pain [None]
  - Vomiting [None]

NARRATIVE: CASE EVENT DATE: 20180321
